FAERS Safety Report 20734737 (Version 1)
Quarter: 2022Q2

REPORT INFORMATION
  Report Type: Report from Study
  Country: GB (occurrence: GB)
  Receive Date: 20220421
  Receipt Date: 20220421
  Transmission Date: 20220721
  Serious: Yes (Other)
  Sender: FDA-Public Use
  Company Number: GB-NOVARTISPH-NVSC2022GB090423

PATIENT
  Sex: Male

DRUGS (1)
  1. COSENTYX [Suspect]
     Active Substance: SECUKINUMAB
     Indication: Ankylosing spondylitis
     Dosage: 300 MG, QMO (300MG/2ML)
     Route: 058

REACTIONS (4)
  - Myeloproliferative neoplasm [Unknown]
  - Renal disorder [Unknown]
  - Weight decreased [Unknown]
  - Depressed mood [Unknown]
